FAERS Safety Report 9644111 (Version 1)
Quarter: 2013Q4

REPORT INFORMATION
  Report Type: Spontaneous
  Country: IT (occurrence: IT)
  Receive Date: 20131024
  Receipt Date: 20131024
  Transmission Date: 20140711
  Serious: Yes (Hospitalization)
  Sender: FDA-Public Use
  Company Number: IT-CELGENEUS-083-21660-13102504

PATIENT
  Age: 59 Year
  Sex: Female

DRUGS (1)
  1. ABRAXANE [Suspect]
     Indication: BREAST CANCER METASTATIC
     Dosage: 340 MILLIGRAM
     Route: 041

REACTIONS (3)
  - Choking sensation [Unknown]
  - Localised oedema [Unknown]
  - Laryngeal oedema [Unknown]
